FAERS Safety Report 19210789 (Version 2)
Quarter: 2021Q2

REPORT INFORMATION
  Report Type: Report from Study
  Country: US (occurrence: US)
  Receive Date: 20210504
  Receipt Date: 20210602
  Transmission Date: 20210717
  Serious: No
  Sender: FDA-Public Use
  Company Number: NVSC2021US099656

PATIENT

DRUGS (1)
  1. ENTRESTO [Suspect]
     Active Substance: SACUBITRIL\VALSARTAN
     Indication: PRODUCT USED FOR UNKNOWN INDICATION
     Dosage: 1 DF, BID
     Route: 048
     Dates: start: 202101

REACTIONS (6)
  - Palpitations [Unknown]
  - Ejection fraction decreased [Unknown]
  - Ligament sprain [Unknown]
  - Dyspnoea [Unknown]
  - Peripheral swelling [Unknown]
  - Pain [Unknown]
